FAERS Safety Report 24591274 (Version 1)
Quarter: 2024Q4

REPORT INFORMATION
  Report Type: Report from Study
  Country: DE (occurrence: DE)
  Receive Date: 20241108
  Receipt Date: 20241108
  Transmission Date: 20250115
  Serious: Yes (Hospitalization)
  Sender: BIOCON
  Company Number: DE-MIMS-BCONMC-8667

PATIENT

DRUGS (2)
  1. HULIO [Suspect]
     Active Substance: ADALIMUMAB-FKJP
     Indication: Ankylosing spondylitis
     Dosage: 40 MG, EVERY 14 DAYS
     Route: 065
     Dates: start: 20190724
  2. CELECOXIB [Concomitant]
     Active Substance: CELECOXIB
     Indication: Product used for unknown indication
     Dosage: 200 MG, QD (ONCE A WEEK)
     Route: 065
     Dates: start: 20230913

REACTIONS (1)
  - Cystocele [Recovered/Resolved]

NARRATIVE: CASE EVENT DATE: 20240322
